FAERS Safety Report 7214899-7 (Version None)
Quarter: 2011Q1

REPORT INFORMATION
  Report Type: 
  Country: None (occurrence: None)
  Receive Date: 20110107
  Receipt Date: 20100428
  Transmission Date: 20110831
  Serious: No
  Sender: FDA-Public Use
  Company Number: A0857101A

PATIENT
  Age: 60 Year
  Sex: Male

DRUGS (3)
  1. SIMVASTATIN [Concomitant]
  2. LOVAZA [Suspect]
     Indication: HIGH DENSITY LIPOPROTEIN DECREASED
     Dosage: 4CAP PER DAY
     Route: 048
     Dates: start: 20100418
  3. LISINOPRIL [Concomitant]

REACTIONS (3)
  - PANIC REACTION [None]
  - ABDOMINAL DISCOMFORT [None]
  - FOREIGN BODY [None]
